FAERS Safety Report 6208436-3 (Version None)
Quarter: 2009Q2

REPORT INFORMATION
  Report Type: 
  Country: None (occurrence: None)
  Receive Date: 20090529
  Receipt Date: 20090519
  Transmission Date: 20091009
  Serious: Yes (Hospitalization)
  Sender: FDA-Public Use
  Company Number: US-ELI_LILLY_AND_COMPANY-US200905003906

PATIENT
  Age: 62 Year
  Sex: Female
  Weight: 60.317 kg

DRUGS (5)
  1. CYMBALTA [Suspect]
     Indication: DIABETIC NEUROPATHY
  2. BYETTA [Concomitant]
     Dosage: 1 D/F, WEEKLY (1/W)
  3. METFORMIN HCL [Concomitant]
  4. CARDIAC THERAPY [Concomitant]
  5. ANTIHYPERTENSIVES [Concomitant]

REACTIONS (3)
  - BLOOD GLUCOSE INCREASED [None]
  - HOSPITALISATION [None]
  - PAIN [None]
